FAERS Safety Report 16403907 (Version 4)
Quarter: 2019Q3

REPORT INFORMATION
  Report Type: Spontaneous
  Country: IT (occurrence: IT)
  Receive Date: 20190607
  Receipt Date: 20190913
  Transmission Date: 20191004
  Serious: Yes (Other)
  Sender: FDA-Public Use
  Company Number: IT-GLAXOSMITHKLINE-IT2019102341

PATIENT
  Age: 50 Year
  Sex: Male

DRUGS (1)
  1. NICOTINE GUM [Suspect]
     Active Substance: NICOTINE
     Indication: PRODUCT USED FOR UNKNOWN INDICATION
     Dosage: FREQUENCY: ONCE
     Route: 048
     Dates: start: 20190530, end: 20190530

REACTIONS (3)
  - Intentional overdose [Unknown]
  - Drug abuse [Unknown]
  - Agitation [Unknown]

NARRATIVE: CASE EVENT DATE: 20190530
